FAERS Safety Report 9542431 (Version 9)
Quarter: 2015Q2

REPORT INFORMATION
  Report Type: Spontaneous
  Country: US (occurrence: US)
  Receive Date: 20130923
  Receipt Date: 20150624
  Transmission Date: 20150821
  Serious: Yes (Hospitalization, Disabling)
  Sender: FDA-Public Use
  Company Number: US-009507513-1205USA01837

PATIENT
  Sex: Male
  Weight: 83.27 kg

DRUGS (3)
  1. PROPECIA [Suspect]
     Active Substance: FINASTERIDE
     Indication: ALOPECIA
     Dosage: 1 MG, UNK
     Route: 048
     Dates: start: 2010, end: 2010
  2. FINASTERIDE. [Suspect]
     Active Substance: FINASTERIDE
     Indication: ALOPECIA
     Dosage: 5 MG, UNK
     Route: 048
     Dates: start: 20110122, end: 20110722
  3. PROSCAR [Suspect]
     Active Substance: FINASTERIDE
     Indication: ALOPECIA
     Dosage: UNK
     Route: 048

REACTIONS (33)
  - Ejaculation disorder [Not Recovered/Not Resolved]
  - Upper respiratory tract infection [Unknown]
  - Erectile dysfunction [Not Recovered/Not Resolved]
  - Blood testosterone decreased [Unknown]
  - Adverse event [Unknown]
  - Conjunctivitis [Unknown]
  - Sexual dysfunction [Not Recovered/Not Resolved]
  - Ejaculation failure [Not Recovered/Not Resolved]
  - Genital pain [Unknown]
  - Hordeolum [Unknown]
  - Paranoid personality disorder [Unknown]
  - Anxiety [Not Recovered/Not Resolved]
  - Depression [Not Recovered/Not Resolved]
  - Hypogonadism [Unknown]
  - Inadequate diet [Unknown]
  - Poor personal hygiene [Unknown]
  - Social avoidant behaviour [Unknown]
  - Hallucination, auditory [Unknown]
  - Libido decreased [Not Recovered/Not Resolved]
  - Memory impairment [Unknown]
  - Pain [Not Recovered/Not Resolved]
  - Paranoia [Unknown]
  - Psychotic disorder [Unknown]
  - Genital swelling [Unknown]
  - Endocrine disorder [Unknown]
  - Overdose [Unknown]
  - Fatigue [Unknown]
  - Schizophrenia, paranoid type [Not Recovered/Not Resolved]
  - Malaise [Unknown]
  - Cognitive disorder [Not Recovered/Not Resolved]
  - Fatigue [Unknown]
  - Hordeolum [Unknown]
  - Sleep disorder [Unknown]

NARRATIVE: CASE EVENT DATE: 20100212
